FAERS Safety Report 8594310-4 (Version None)
Quarter: 2012Q3

REPORT INFORMATION
  Report Type: 
  Country: None (occurrence: None)
  Receive Date: 20120815
  Receipt Date: 20120809
  Transmission Date: 20120928
  Serious: Yes (Life-Threatening)
  Sender: FDA-Public Use
  Company Number: FR-BIOGENIDEC-2012BI030451

PATIENT
  Age: 39 Year
  Sex: Female

DRUGS (1)
  1. AVONEX [Suspect]
     Indication: MULTIPLE SCLEROSIS
     Route: 030
     Dates: start: 20110926, end: 20120601

REACTIONS (2)
  - SUICIDAL IDEATION [None]
  - AGITATION [None]
